FAERS Safety Report 15745769 (Version 1)
Quarter: 2018Q4

REPORT INFORMATION
  Report Type: Spontaneous
  Country: IT (occurrence: IT)
  Receive Date: 20181220
  Receipt Date: 20181220
  Transmission Date: 20190205
  Serious: Yes (Other)
  Sender: FDA-Public Use
  Company Number: PHHY2018IT190741

PATIENT
  Age: 46 Year
  Sex: Male
  Weight: 46 kg

DRUGS (1)
  1. EXJADE [Suspect]
     Active Substance: DEFERASIROX
     Indication: CHELATION THERAPY
     Dosage: 900 MG, QD
     Route: 048
     Dates: start: 20181130, end: 20181130

REACTIONS (3)
  - Diarrhoea [Recovered/Resolved]
  - Choking sensation [Recovered/Resolved]
  - Paraesthesia oral [Recovered/Resolved]

NARRATIVE: CASE EVENT DATE: 20181130
